FAERS Safety Report 6426410-9 (Version None)
Quarter: 2009Q4

REPORT INFORMATION
  Report Type: 
  Country: None (occurrence: None)
  Receive Date: 20091103
  Receipt Date: 20091103
  Transmission Date: 20100525
  Serious: No
  Sender: FDA-Public Use
  Company Number: None

PATIENT
  Age: 62 Year
  Sex: Male

DRUGS (1)
  1. IOPROMIDE [Suspect]
     Indication: SCAN WITH CONTRAST
     Dosage: 30 ML ONCE IV
     Route: 042
     Dates: start: 20090311, end: 20090311

REACTIONS (3)
  - ERYTHEMA [None]
  - RASH [None]
  - URTICARIA [None]
